FAERS Safety Report 5140818-3 (Version None)
Quarter: 2006Q4

REPORT INFORMATION
  Report Type: 
  Country: None (occurrence: None)
  Receive Date: 20061026
  Receipt Date: 20061016
  Transmission Date: 20070319
  Serious: Yes (Hospitalization)
  Sender: FDA-Public Use
  Company Number: A-CH2006-13285

PATIENT
  Age: 70 Year
  Sex: Female

DRUGS (11)
  1. TRACLEER [Suspect]
     Indication: PULMONARY HYPERTENSION
     Dosage: SEE IMAGE
     Route: 048
     Dates: start: 20060901, end: 20060930
  2. TRACLEER [Suspect]
     Indication: PULMONARY HYPERTENSION
     Dosage: SEE IMAGE
     Route: 048
     Dates: start: 20061001, end: 20061014
  3. TRACLEER [Suspect]
     Indication: PULMONARY HYPERTENSION
     Dosage: SEE IMAGE
     Route: 048
     Dates: start: 20061015
  4. LOSEC (OMEPRAZOLE) [Concomitant]
  5. GLUCOPHAGE [Concomitant]
  6. LOPRESSOR [Concomitant]
  7. ASPIRIN [Concomitant]
  8. OCSAAR (LOSARTAN) [Concomitant]
  9. PREDNISONE TAB [Concomitant]
  10. NIFEDIPINE [Concomitant]
  11. INSULIN (INSULIN) [Concomitant]

REACTIONS (1)
  - ASTHMA [None]
